FAERS Safety Report 4354885-8 (Version None)
Quarter: 2004Q2

REPORT INFORMATION
  Report Type: 
  Country: None (occurrence: None)
  Receive Date: 20040507
  Receipt Date: 20040429
  Transmission Date: 20050107
  Serious: Yes (Life-Threatening)
  Sender: FDA-Public Use
  Company Number: US-MERCK-0404USA02523

PATIENT
  Sex: Female

DRUGS (2)
  1. PRINIVIL [Suspect]
     Route: 048
  2. SINGULAIR [Suspect]
     Indication: ASTHMA
     Route: 048

REACTIONS (2)
  - CARDIAC ARREST [None]
  - MEDICATION ERROR [None]
